FAERS Safety Report 22321390 (Version 1)
Quarter: 2023Q2

REPORT INFORMATION
  Report Type: Report from Study
  Country: US (occurrence: US)
  Receive Date: 20230515
  Receipt Date: 20230515
  Transmission Date: 20230721
  Serious: Yes (Other)
  Sender: FDA-Public Use
  Company Number: US-HLS-202300091

PATIENT
  Age: 38 Year
  Sex: Male
  Weight: 70 kg

DRUGS (6)
  1. CLOZARIL [Suspect]
     Active Substance: CLOZAPINE
     Indication: Bipolar disorder
     Dosage: 150MG
     Route: 048
     Dates: start: 20090501
  2. CLOZARIL [Suspect]
     Active Substance: CLOZAPINE
     Indication: Bipolar disorder
     Dosage: 25MG AND 100 MG (NDC #: 69809012705 ,6980901260)
     Route: 048
  3. UNSPECIFIED INGREDIENT [Concomitant]
     Active Substance: UNSPECIFIED INGREDIENT
     Indication: Bipolar disorder
     Dosage: 150MG
     Route: 065
     Dates: start: 201303
  4. UNSPECIFIED INGREDIENT [Concomitant]
     Active Substance: UNSPECIFIED INGREDIENT
     Indication: Salivary hypersecretion
     Dosage: 2MG
     Route: 048
     Dates: start: 201005
  5. DEPAKOTE [Concomitant]
     Active Substance: DIVALPROEX SODIUM
     Indication: Product used for unknown indication
     Dosage: 750MG
     Route: 048
     Dates: start: 200903
  6. UNSPECIFIED INGREDIENT [Concomitant]
     Active Substance: UNSPECIFIED INGREDIENT
     Indication: Insomnia
     Dosage: 0.2MG
     Route: 065
     Dates: start: 201301

REACTIONS (3)
  - Neutrophil count decreased [Recovered/Resolved]
  - Off label use [Unknown]
  - Product use issue [Unknown]

NARRATIVE: CASE EVENT DATE: 20230303
